FAERS Safety Report 8438650-8 (Version None)
Quarter: 2012Q2

REPORT INFORMATION
  Report Type: 
  Country: None (occurrence: None)
  Receive Date: 20120615
  Receipt Date: 20120604
  Transmission Date: 20120825
  Serious: Yes (Hospitalization)
  Sender: FDA-Public Use
  Company Number: KR-BRISTOL-MYERS SQUIBB COMPANY-16662959

PATIENT
  Age: 55 Year
  Sex: Male

DRUGS (1)
  1. WARFARIN SODIUM [Suspect]
     Indication: VASCULAR OCCLUSION

REACTIONS (2)
  - MUSCLE HAEMORRHAGE [None]
  - NEUROPATHY PERIPHERAL [None]
